FAERS Safety Report 19185645 (Version 1)
Quarter: 2021Q2

REPORT INFORMATION
  Report Type: Spontaneous
  Country: US (occurrence: US)
  Receive Date: 20210427
  Receipt Date: 20210427
  Transmission Date: 20210717
  Serious: Yes (Other)
  Sender: FDA-Public Use
  Company Number: US-PFIZER INC-2020011213

PATIENT
  Age: 80 Year

DRUGS (1)
  1. DETROL LA [Suspect]
     Active Substance: TOLTERODINE TARTRATE
     Dosage: 1 DF, 2X/DAY (ONE TWICE A DAY)

REACTIONS (2)
  - Diabetes mellitus [Unknown]
  - Off label use [Unknown]
